FAERS Safety Report 10335043 (Version 2)
Quarter: 2014Q3

REPORT INFORMATION
  Report Type: Spontaneous
  Country: CA (occurrence: CA)
  Receive Date: 20140723
  Receipt Date: 20140723
  Transmission Date: 20150326
  Serious: Yes (Other)
  Sender: FDA-Public Use
  Company Number: CA-ELI_LILLY_AND_COMPANY-CA201407004884

PATIENT
  Age: 68 Year
  Sex: Male

DRUGS (21)
  1. ASA [Concomitant]
     Active Substance: ASPIRIN
     Dosage: 81 MG, UNKNOWN
     Route: 065
     Dates: start: 20130705
  2. METFORMIN [Concomitant]
     Active Substance: METFORMIN HYDROCHLORIDE
     Dosage: 1000 MG, BID
     Route: 065
     Dates: start: 20130705
  3. COVERSYL                           /00790702/ [Concomitant]
     Active Substance: PERINDOPRIL
     Dosage: 4 MG, QD
     Route: 065
     Dates: start: 20140603
  4. MIRTAZAPINE. [Concomitant]
     Active Substance: MIRTAZAPINE
     Dosage: 15 MG, QD
     Route: 065
     Dates: start: 20140626
  5. PROSCAR [Concomitant]
     Active Substance: FINASTERIDE
     Dosage: 5 MG, QD
     Route: 048
     Dates: start: 20101109
  6. FLOMAX [Concomitant]
     Active Substance: TAMSULOSIN HYDROCHLORIDE
     Dosage: 0.8 MG, EACH EVENING
     Route: 048
     Dates: start: 20091013
  7. CALCIUM [Concomitant]
     Active Substance: CALCIUM
     Dosage: 0.8 MG, EACH EVENING
     Route: 065
     Dates: start: 20090906
  8. BETAMETHASONE [Concomitant]
     Active Substance: BETAMETHASONE
     Dosage: UNK
  9. CIPRALEX [Concomitant]
     Active Substance: ESCITALOPRAM OXALATE
     Dosage: 15 MG, QD
     Route: 065
     Dates: start: 20130802
  10. SYMBICORT [Concomitant]
     Active Substance: BUDESONIDE\FORMOTEROL FUMARATE DIHYDRATE
     Dosage: 2 DF, BID
     Route: 065
  11. LIPITOR [Concomitant]
     Active Substance: ATORVASTATIN CALCIUM
     Dosage: 80 MG, QD
     Route: 048
     Dates: start: 20101109
  12. ECTOSONE [Concomitant]
     Dosage: 500 G, BID
     Route: 061
     Dates: start: 20130705
  13. ATROVENT [Concomitant]
     Active Substance: IPRATROPIUM BROMIDE
     Dosage: 1 DF, QID
     Route: 048
     Dates: start: 20120717
  14. FUROSEMIDE. [Concomitant]
     Active Substance: FUROSEMIDE
     Dosage: 40 MG, QD
     Route: 065
     Dates: start: 20140515
  15. CYMBALTA [Suspect]
     Active Substance: DULOXETINE HYDROCHLORIDE
     Indication: PRODUCT USED FOR UNKNOWN INDICATION
     Dosage: 60 MG, QD
     Route: 048
     Dates: start: 20130228, end: 20140213
  16. ZOPICLONE [Concomitant]
     Active Substance: ZOPICLONE
     Dosage: 15 MG, EACH EVENING
     Dates: start: 20100702
  17. DERMASONE [Concomitant]
     Dosage: UNK, BID
     Dates: start: 20090906
  18. CYMBALTA [Suspect]
     Active Substance: DULOXETINE HYDROCHLORIDE
     Dosage: 90 MG, QD
     Route: 048
     Dates: start: 20140214
  19. ELOCOM [Concomitant]
     Active Substance: MOMETASONE FUROATE
     Dosage: UNK, BID
  20. CALCIUM [Concomitant]
     Active Substance: CALCIUM
     Dosage: 200 MG, QD
     Route: 065
     Dates: start: 20090906
  21. MAGNESIUM [Concomitant]
     Active Substance: MAGNESIUM
     Dosage: 800 IU, QD
     Route: 065
     Dates: start: 20090906

REACTIONS (1)
  - Cardiac failure [Unknown]
